FAERS Safety Report 6552505-5 (Version None)
Quarter: 2010Q1

REPORT INFORMATION
  Report Type: 
  Country: None (occurrence: None)
  Receive Date: 20100126
  Receipt Date: 20100120
  Transmission Date: 20100710
  Serious: Yes (Hospitalization)
  Sender: FDA-Public Use
  Company Number: US-GENENTECH-297099

PATIENT
  Sex: Male
  Weight: 81.8 kg

DRUGS (6)
  1. RITUXIMAB [Suspect]
     Indication: B-CELL LYMPHOMA
     Dosage: 800 MG, UNK
     Route: 065
     Dates: start: 20091007
  2. VELCADE [Suspect]
     Indication: B-CELL LYMPHOMA
     Dosage: 3.4 MG, UNK
     Route: 042
     Dates: start: 20091007
  3. CYCLOPHOSPHAMIDE [Suspect]
     Indication: B-CELL LYMPHOMA
     Dosage: 1575 MG, UNK
     Route: 065
     Dates: start: 20091007, end: 20091211
  4. ADRIAMYCIN PFS [Suspect]
     Indication: B-CELL LYMPHOMA
     Dosage: 105 MG, UNK
     Route: 065
     Dates: start: 20091007, end: 20091211
  5. VINCRISTINE [Suspect]
     Indication: B-CELL LYMPHOMA
     Dosage: 1.5 MG, UNK
     Route: 065
     Dates: start: 20091007, end: 20091211
  6. PREDNISONE [Suspect]
     Indication: B-CELL LYMPHOMA
     Dosage: 100 MG, UNK
     Route: 065
     Dates: start: 20091007, end: 20091211

REACTIONS (1)
  - FEBRILE NEUTROPENIA [None]
